FAERS Safety Report 23314558 (Version 4)
Quarter: 2024Q1

REPORT INFORMATION
  Report Type: Spontaneous
  Country: US (occurrence: US)
  Receive Date: 20231219
  Receipt Date: 20240214
  Transmission Date: 20240409
  Serious: No
  Sender: FDA-Public Use
  Company Number: US-PFIZER INC-202300433939

PATIENT
  Age: 4 Year
  Sex: Male
  Weight: 12 kg

DRUGS (1)
  1. GENOTROPIN [Suspect]
     Active Substance: SOMATROPIN
     Indication: Growth hormone deficiency
     Dosage: 0.5 MG, DAILY
     Dates: start: 20230927

REACTIONS (4)
  - Device use issue [Unknown]
  - Drug dose omission by device [Unknown]
  - Device operational issue [Unknown]
  - Device information output issue [Unknown]
